FAERS Safety Report 8357409-3 (Version None)
Quarter: 2012Q2

REPORT INFORMATION
  Report Type: 
  Country: None (occurrence: None)
  Receive Date: 20120514
  Receipt Date: 20120502
  Transmission Date: 20120825
  Serious: No
  Sender: FDA-Public Use
  Company Number: JP-UCBSA-052387

PATIENT
  Age: 36 Year
  Sex: Male

DRUGS (8)
  1. KEPPRA [Suspect]
     Indication: PARTIAL SEIZURES WITH SECONDARY GENERALISATION
     Route: 048
     Dates: start: 20120207, end: 20120215
  2. TEGRETOL [Suspect]
     Indication: COMPLEX PARTIAL SEIZURES
     Dosage: DAILY DOSE :1600 MG
     Route: 048
  3. PHENYTOIN SODIUM CAP [Suspect]
     Indication: COMPLEX PARTIAL SEIZURES
     Dosage: DAILY DOSE: 400 MG
     Route: 048
  4. TEGRETOL [Suspect]
     Indication: PARTIAL SEIZURES WITH SECONDARY GENERALISATION
     Dosage: DAILY DOSE :1600 MG
     Route: 048
  5. KEPPRA [Suspect]
     Indication: COMPLEX PARTIAL SEIZURES
     Route: 048
     Dates: start: 20120207, end: 20120215
  6. KEPPRA [Suspect]
     Route: 048
     Dates: start: 20120130, end: 20120101
  7. PHENYTOIN SODIUM CAP [Suspect]
     Indication: PARTIAL SEIZURES WITH SECONDARY GENERALISATION
     Dosage: DAILY DOSE: 400 MG
     Route: 048
  8. KEPPRA [Suspect]
     Route: 048
     Dates: start: 20120130, end: 20120101

REACTIONS (1)
  - WHITE BLOOD CELL COUNT DECREASED [None]
